FAERS Safety Report 5528962-X (Version None)
Quarter: 2007Q4

REPORT INFORMATION
  Report Type: 
  Country: None (occurrence: None)
  Receive Date: 20071129
  Receipt Date: 20071119
  Transmission Date: 20080405
  Serious: Yes (Hospitalization, Disabling)
  Sender: FDA-Public Use
  Company Number: FR-WYE-G00657307

PATIENT
  Sex: Female

DRUGS (7)
  1. EFFEXOR XR [Suspect]
     Dosage: INTAKE OF 1 TABLET OF EFFEXOR LP 37.5 MG
     Route: 048
     Dates: start: 20071019, end: 20071019
  2. TARDYFERON [Concomitant]
     Indication: IRON DEFICIENCY
     Route: 048
     Dates: start: 20070101
  3. TROSPIUM CHLORIDE [Concomitant]
     Route: 048
     Dates: start: 20070101
  4. LUTENYL [Concomitant]
     Route: 048
     Dates: start: 20070101
  5. PROCTOLOG [Concomitant]
     Dosage: 1 APPLICATION 2 TIMES PER DAY
     Route: 061
     Dates: start: 20070101
  6. LEVOTHYROXINE SODIUM [Concomitant]
     Indication: HYPOTHYROIDISM
     Route: 048
     Dates: start: 20070101
  7. SPASMINE JOLLY [Concomitant]
     Route: 048
     Dates: start: 20070101

REACTIONS (25)
  - ABDOMINAL DISTENSION [None]
  - ABDOMINAL PAIN UPPER [None]
  - ANXIETY [None]
  - BACK PAIN [None]
  - BLOOD PRESSURE INCREASED [None]
  - BODY TEMPERATURE INCREASED [None]
  - DIZZINESS [None]
  - DRUG INTOLERANCE [None]
  - DYSARTHRIA [None]
  - FATIGUE [None]
  - FLATULENCE [None]
  - GASTRIC DISORDER [None]
  - HALLUCINATION, VISUAL [None]
  - HEADACHE [None]
  - MOBILITY DECREASED [None]
  - MUSCULAR WEAKNESS [None]
  - MYOTONIA [None]
  - NAUSEA [None]
  - PALPITATIONS [None]
  - PARAESTHESIA [None]
  - POLLAKIURIA [None]
  - SENSATION OF HEAVINESS [None]
  - SLEEP DISORDER [None]
  - SPEECH DISORDER [None]
  - TREMOR [None]
